FAERS Safety Report 16099780 (Version 1)
Quarter: 2019Q2

REPORT INFORMATION
  Report Type: Spontaneous
  Country: US (occurrence: US)
  Receive Date: 20190320
  Receipt Date: 20190320
  Transmission Date: 20190711
  Serious: No
  Sender: FDA-Public Use
  Company Number: None

PATIENT
  Sex: Male

DRUGS (2)
  1. GABAPENTIN 600MG [Suspect]
     Active Substance: GABAPENTIN
  2. CYCLOBENZAPRINE 10MG [Suspect]
     Active Substance: CYCLOBENZAPRINE

REACTIONS (1)
  - Drug ineffective [None]
